FAERS Safety Report 20946485 (Version 1)
Quarter: 2022Q2

REPORT INFORMATION
  Report Type: Spontaneous
  Country: BR (occurrence: None)
  Receive Date: 20220610
  Receipt Date: 20220610
  Transmission Date: 20220720
  Serious: Yes (Other)
  Sender: FDA-Public Use
  Company Number: BR-Merck Healthcare KGaA-9327583

PATIENT
  Sex: Female

DRUGS (1)
  1. LEVOTHYROXINE SODIUM [Suspect]
     Active Substance: LEVOTHYROXINE SODIUM
     Indication: Thyroid disorder
     Route: 048

REACTIONS (6)
  - Mental impairment [Recovered/Resolved]
  - Feeling abnormal [Recovered/Resolved]
  - Thinking abnormal [Recovered/Resolved]
  - Impaired reasoning [Recovered/Resolved]
  - Depressed mood [Recovered/Resolved]
  - Headache [Recovered/Resolved]
